FAERS Safety Report 8806900 (Version 1)
Quarter: 2012Q4

REPORT INFORMATION
  Report Type: 
  Country: GB (occurrence: GB)
  Receive Date: 20120925
  Receipt Date: 20120925
  Transmission Date: 20130627
  Serious: Yes (Hospitalization)
  Sender: FDA-Public Use
  Company Number: GB-BAYER-2012-096139

PATIENT
  Age: 74 Year
  Sex: Female

DRUGS (5)
  1. ACETYLSALICYLIC ACID({=100 MG) [Suspect]
     Indication: MYOCARDIAL INFARCTION
     Dosage: Daily dose 75 mg
     Route: 048
  2. ACETYLSALICYLIC ACID({=100 MG) [Suspect]
     Indication: CORONARY ARTERY BYPASS
  3. PREDNISOLONE [Suspect]
     Indication: RHEUMATOID ARTHRITIS
     Dosage: maintenance dose
     Route: 048
  4. PREDNISOLONE [Suspect]
     Indication: SYNOVITIS
     Dosage: during periods of active synovitis
     Route: 048
  5. METHOTREXATE [Suspect]
     Indication: RHEUMATOID ARTHRITIS
     Dosage: 15 mg, OW
     Route: 048

REACTIONS (4)
  - Cholecystitis acute [Not Recovered/Not Resolved]
  - Gallbladder perforation [Recovered/Resolved]
  - Intra-abdominal haemorrhage [Recovered/Resolved]
  - Hypovolaemic shock [Recovered/Resolved]
